FAERS Safety Report 9470364 (Version 1)
Quarter: 2013Q3

REPORT INFORMATION
  Report Type: Spontaneous
  Country: US (occurrence: US)
  Receive Date: 20130822
  Receipt Date: 20130822
  Transmission Date: 20140515
  Serious: No
  Sender: FDA-Public Use
  Company Number: US-SANOFI-AVENTIS-2013SA004099

PATIENT
  Age: 96 Year
  Sex: Female

DRUGS (3)
  1. MULTAQ [Suspect]
     Indication: ATRIAL FIBRILLATION
     Route: 048
     Dates: start: 201210
  2. LOPRESSOR HCT [Concomitant]
  3. ASA [Concomitant]

REACTIONS (2)
  - Unevaluable event [Unknown]
  - Tooth disorder [Unknown]
